FAERS Safety Report 9918851 (Version 4)
Quarter: 2014Q2

REPORT INFORMATION
  Report Type: Spontaneous
  Country: JP (occurrence: JP)
  Receive Date: 20140224
  Receipt Date: 20140606
  Transmission Date: 20141212
  Serious: Yes (Other)
  Sender: FDA-Public Use
  Company Number: JP-PFIZER INC-2014040087

PATIENT
  Age: 72 Year
  Sex: Female
  Weight: 47.2 kg

DRUGS (11)
  1. ALDACTONE A [Suspect]
     Indication: ASCITES
     Dosage: 25 MG, 1X/DAY
     Route: 048
     Dates: start: 20131203, end: 20140124
  2. LASIX [Suspect]
     Dosage: 20 MG, DAILY
     Route: 048
  3. PURSENNID [Concomitant]
     Dosage: 12 MG, DAILY
     Route: 048
  4. URSO [Concomitant]
     Dosage: 15 MG, DAILY
     Route: 048
  5. AMINOLEBAN [Concomitant]
     Dosage: 50 G, DAILY
     Route: 048
  6. MAGLAX [Concomitant]
     Dosage: 330 MG, DAILY
     Route: 048
  7. WARFARIN [Concomitant]
     Dosage: 1 MG, DAILY
     Route: 048
  8. MYSLEE [Concomitant]
     Dosage: 5 MG, DAILY
     Route: 048
  9. MONILAC [Concomitant]
     Dosage: 10 ML, DAILY
     Route: 048
  10. BLOPRESS [Concomitant]
     Dosage: 8 MG, DAILY
     Route: 048
  11. TAKEPRON [Concomitant]
     Dosage: 15 MG, DAILY
     Route: 048

REACTIONS (2)
  - Hyponatraemia [Recovered/Resolved]
  - Loss of consciousness [Recovered/Resolved]
